FAERS Safety Report 25175746 (Version 2)
Quarter: 2025Q2

REPORT INFORMATION
  Report Type: Spontaneous
  Country: JP (occurrence: JP)
  Receive Date: 20250408
  Receipt Date: 20250616
  Transmission Date: 20250717
  Serious: Yes (Death)
  Sender: TAKEDA
  Company Number: JP-TAKEDA-2025TJP000968

PATIENT
  Age: 5 Decade
  Sex: Female

DRUGS (2)
  1. FRUZAQLA [Suspect]
     Active Substance: FRUQUINTINIB
     Indication: Product used for unknown indication
  2. FRUZAQLA [Suspect]
     Active Substance: FRUQUINTINIB

REACTIONS (6)
  - Disease progression [Fatal]
  - Nausea [Recovered/Resolved]
  - C-reactive protein increased [Unknown]
  - Somnolence [Recovering/Resolving]
  - Oedema [Not Recovered/Not Resolved]
  - Fatigue [Recovering/Resolving]
